FAERS Safety Report 8238738-0 (Version None)
Quarter: 2012Q1

REPORT INFORMATION
  Report Type: 
  Country: None (occurrence: None)
  Receive Date: 20120326
  Receipt Date: 20120313
  Transmission Date: 20120608
  Serious: Yes (Other)
  Sender: FDA-Public Use
  Company Number: GGEL20120300206

PATIENT
  Age: 35 Year
  Sex: Female

DRUGS (2)
  1. TOPIRAMATE [Suspect]
     Indication: CONVULSION
     Dosage: 200 MILLIGRAM, 2 IN 1 D, ORAL
     Route: 048
     Dates: start: 20120211, end: 20120201
  2. EPILUM CHRONO (SODIUM VALPROATE, VALPROATE ACID) (SODIUM VALPROATE, VA [Concomitant]

REACTIONS (2)
  - CONVULSION [None]
  - DRUG INEFFECTIVE [None]
